FAERS Safety Report 5755942-1 (Version None)
Quarter: 2008Q2

REPORT INFORMATION
  Report Type: 
  Country: None (occurrence: None)
  Receive Date: 20080528
  Receipt Date: 20080513
  Transmission Date: 20081010
  Serious: Yes (Hospitalization)
  Sender: FDA-Public Use
  Company Number: E2090-00412-SPO-JP

PATIENT
  Age: 11 Year
  Sex: Male

DRUGS (16)
  1. EXCEGRAN (ZONISASMIDE) [Suspect]
     Indication: CONVULSION
     Dosage: 80 MG, ORAL; 120 MG, ORAL; 150 MG, ORAL; 180 MG, ORAL; 210 MG, ORAL; 250 MG, ORAL
     Route: 048
     Dates: start: 20070731, end: 20070803
  2. EXCEGRAN (ZONISASMIDE) [Suspect]
     Indication: CONVULSION
     Dosage: 80 MG, ORAL; 120 MG, ORAL; 150 MG, ORAL; 180 MG, ORAL; 210 MG, ORAL; 250 MG, ORAL
     Route: 048
     Dates: start: 20070804, end: 20070815
  3. EXCEGRAN (ZONISASMIDE) [Suspect]
     Indication: CONVULSION
     Dosage: 80 MG, ORAL; 120 MG, ORAL; 150 MG, ORAL; 180 MG, ORAL; 210 MG, ORAL; 250 MG, ORAL
     Route: 048
     Dates: start: 20070816, end: 20070829
  4. EXCEGRAN (ZONISASMIDE) [Suspect]
     Indication: CONVULSION
     Dosage: 80 MG, ORAL; 120 MG, ORAL; 150 MG, ORAL; 180 MG, ORAL; 210 MG, ORAL; 250 MG, ORAL
     Route: 048
     Dates: start: 20070830, end: 20070902
  5. EXCEGRAN (ZONISASMIDE) [Suspect]
     Indication: CONVULSION
     Dosage: 80 MG, ORAL; 120 MG, ORAL; 150 MG, ORAL; 180 MG, ORAL; 210 MG, ORAL; 250 MG, ORAL
     Route: 048
     Dates: start: 20070903, end: 20070906
  6. EXCEGRAN (ZONISASMIDE) [Suspect]
     Indication: CONVULSION
     Dosage: 80 MG, ORAL; 120 MG, ORAL; 150 MG, ORAL; 180 MG, ORAL; 210 MG, ORAL; 250 MG, ORAL
     Route: 048
     Dates: start: 20070907, end: 20070910
  7. PHENYTOIN [Suspect]
     Indication: CONVULSION
     Dosage: 500 MG; 200 MG; 100 MG
     Dates: start: 20070629, end: 20070629
  8. PHENYTOIN [Suspect]
     Indication: CONVULSION
     Dosage: 500 MG; 200 MG; 100 MG
     Dates: start: 20070630, end: 20070702
  9. PHENYTOIN [Suspect]
     Indication: CONVULSION
     Dosage: 500 MG; 200 MG; 100 MG
     Dates: start: 20070703, end: 20070704
  10. VALPROATE SODIUM [Suspect]
     Indication: CONVULSION
     Dosage: 300 MG, ORAL
     Route: 048
     Dates: start: 20070703, end: 20070703
  11. DEPAKENE [Suspect]
     Indication: CONVULSION
     Dosage: 600 MG, ORAL
     Route: 048
     Dates: start: 20070703, end: 20070711
  12. WAKOBITAL (PHENOBARBITAL SODIUM) [Suspect]
     Indication: CONVULSION
     Dosage: 400 MG, RECTAL; 150 MG, RECTAL
     Route: 054
     Dates: start: 20070705, end: 20070705
  13. WAKOBITAL (PHENOBARBITAL SODIUM) [Suspect]
     Indication: CONVULSION
     Dosage: 400 MG, RECTAL; 150 MG, RECTAL
     Route: 054
     Dates: start: 20070706, end: 20070713
  14. DORMICUM (MIDAZOLAM) [Suspect]
     Indication: CONVULSION
     Dosage: 3 MG; INTRAVENOUS
     Dates: start: 20070629, end: 20070629
  15. DORMICUM (MIDAZOLAM) [Suspect]
     Indication: CONVULSION
     Dosage: 3 MG; INTRAVENOUS
     Dates: start: 20070630, end: 20080207
  16. THIOPENTAL SODIUM [Suspect]
     Indication: CONVULSION
     Dosage: 50 MG
     Dates: start: 20070630, end: 20070630

REACTIONS (11)
  - ALANINE AMINOTRANSFERASE INCREASED [None]
  - CONVULSION [None]
  - DERMATITIS EXFOLIATIVE [None]
  - DRUG RASH WITH EOSINOPHILIA AND SYSTEMIC SYMPTOMS [None]
  - ENCEPHALITIS [None]
  - ENCEPHALOPATHY [None]
  - HEPATIC ENZYME INCREASED [None]
  - HEPATIC FUNCTION ABNORMAL [None]
  - LOSS OF CONSCIOUSNESS [None]
  - LYMPHOCYTE STIMULATION TEST POSITIVE [None]
  - PYREXIA [None]
